FAERS Safety Report 14538802 (Version 1)
Quarter: 2018Q1

REPORT INFORMATION
  Report Type: Spontaneous
  Country: NL (occurrence: NL)
  Receive Date: 20180216
  Receipt Date: 20180216
  Transmission Date: 20180509
  Serious: Yes (Hospitalization, Other)
  Sender: FDA-Public Use
  Company Number: NL-VISTAPHARM, INC.-VER201712-001373

PATIENT
  Age: 43 Year
  Sex: Male

DRUGS (3)
  1. VALPROIC ACID. [Suspect]
     Active Substance: VALPROIC ACID
     Indication: PRODUCT USED FOR UNKNOWN INDICATION
     Route: 048
  2. QUETIAPINE. [Suspect]
     Active Substance: QUETIAPINE
     Indication: PRODUCT USED FOR UNKNOWN INDICATION
     Dosage: INCLUDING TABLETS WITH SUSTAINED RELEASE
  3. OXAZEPAM. [Suspect]
     Active Substance: OXAZEPAM
     Indication: PRODUCT USED FOR UNKNOWN INDICATION

REACTIONS (7)
  - Haemodynamic instability [Recovered/Resolved]
  - Coma [Recovered/Resolved]
  - Hyperammonaemia [Recovered/Resolved]
  - Overdose [Unknown]
  - Poisoning [Recovered/Resolved]
  - Electrocardiogram QT prolonged [Recovered/Resolved]
  - Metabolic encephalopathy [Recovered/Resolved]
